FAERS Safety Report 11393902 (Version 2)
Quarter: 2015Q3

REPORT INFORMATION
  Report Type: Spontaneous
  Country: US (occurrence: US)
  Receive Date: 20150819
  Receipt Date: 20150917
  Transmission Date: 20151125
  Serious: Yes (Other)
  Sender: FDA-Public Use
  Company Number: US-AMGEN-USASP2015082781

PATIENT
  Age: 48 Year
  Sex: Female

DRUGS (1)
  1. ENBREL [Suspect]
     Active Substance: ETANERCEPT
     Indication: RHEUMATOID ARTHRITIS
     Dosage: 50 MG, QWK
     Route: 058

REACTIONS (6)
  - Injection site erythema [Unknown]
  - Nausea [Not Recovered/Not Resolved]
  - Neoplasm malignant [Unknown]
  - Rheumatoid arthritis [Unknown]
  - Drug dose omission [Unknown]
  - Injection site extravasation [Unknown]
